FAERS Safety Report 13614244 (Version 12)
Quarter: 2019Q1

REPORT INFORMATION
  Report Type: Report from Study
  Country: None (occurrence: US)
  Receive Date: 20170606
  Receipt Date: 20190308
  Transmission Date: 20190417
  Serious: Yes (Hospitalization, Other)
  Sender: FDA-Public Use
  Company Number: US-ABBVIE-17K-163-1871156-00

PATIENT
  Age: 69 Year
  Sex: Female
  Weight: 74.91 kg

DRUGS (21)
  1. TRAMADOL. [Concomitant]
     Active Substance: TRAMADOL
     Indication: PAIN
  2. PROTONIX [Concomitant]
     Active Substance: PANTOPRAZOLE SODIUM
     Indication: PRODUCT USED FOR UNKNOWN INDICATION
  3. HYOSCYAMINE. [Concomitant]
     Active Substance: HYOSCYAMINE
     Indication: PRODUCT USED FOR UNKNOWN INDICATION
  4. HUMIRA [Suspect]
     Active Substance: ADALIMUMAB
     Indication: RHEUMATOID ARTHRITIS
     Route: 058
     Dates: start: 20150922, end: 201704
  5. SIMVASTATIN. [Concomitant]
     Active Substance: SIMVASTATIN
     Indication: BLOOD CHOLESTEROL INCREASED
  6. HUMIRA [Suspect]
     Active Substance: ADALIMUMAB
     Route: 058
     Dates: start: 20170530
  7. CALCIUM [Concomitant]
     Active Substance: CALCIUM
     Indication: PRODUCT USED FOR UNKNOWN INDICATION
  8. ASPIRIN. [Concomitant]
     Active Substance: ASPIRIN
     Indication: PRODUCT USED FOR UNKNOWN INDICATION
  9. VENLAFAXINE [Concomitant]
     Active Substance: VENLAFAXINE HYDROCHLORIDE
     Indication: DEPRESSION
  10. PROBIOTIC [Concomitant]
     Active Substance: PROBIOTICS NOS
     Indication: PRODUCT USED FOR UNKNOWN INDICATION
  11. OXYBUTYNIN. [Concomitant]
     Active Substance: OXYBUTYNIN CHLORIDE
     Indication: PRODUCT USED FOR UNKNOWN INDICATION
  12. ESTRADIOL. [Concomitant]
     Active Substance: ESTRADIOL
     Indication: PRODUCT USED FOR UNKNOWN INDICATION
  13. PRESERVISION [Concomitant]
     Active Substance: MINERALS\VITAMINS
     Indication: PRODUCT USED FOR UNKNOWN INDICATION
  14. METFORMIN [Concomitant]
     Active Substance: METFORMIN HYDROCHLORIDE
     Indication: PRODUCT USED FOR UNKNOWN INDICATION
  15. MELOXICAM. [Concomitant]
     Active Substance: MELOXICAM
     Indication: PRODUCT USED FOR UNKNOWN INDICATION
  16. KLONOPIN [Concomitant]
     Active Substance: CLONAZEPAM
     Indication: ANXIETY
  17. CRANBERRY. [Concomitant]
     Active Substance: CRANBERRY
     Indication: PRODUCT USED FOR UNKNOWN INDICATION
  18. PREDNISONE. [Concomitant]
     Active Substance: PREDNISONE
     Indication: PRODUCT USED FOR UNKNOWN INDICATION
  19. LUTEIN [Concomitant]
     Active Substance: LUTEIN
     Indication: PRODUCT USED FOR UNKNOWN INDICATION
  20. GABAPENTIN. [Concomitant]
     Active Substance: GABAPENTIN
     Indication: NEUROPATHY PERIPHERAL
  21. FENOFIBRATE. [Concomitant]
     Active Substance: FENOFIBRATE
     Indication: BLOOD CHOLESTEROL INCREASED

REACTIONS (37)
  - Rheumatoid arthritis [Recovered/Resolved]
  - Bursitis [Unknown]
  - Tooth fracture [Unknown]
  - Fall [Recovered/Resolved]
  - Rheumatoid arthritis [Recovered/Resolved]
  - Macular degeneration [Unknown]
  - Incision site erythema [Unknown]
  - Dental restoration failure [Unknown]
  - Malaise [Unknown]
  - Neck injury [Unknown]
  - Arthralgia [Unknown]
  - Sciatica [Unknown]
  - Herpes zoster [Unknown]
  - Back pain [Unknown]
  - Knee deformity [Unknown]
  - Limb deformity [Unknown]
  - Incision site pruritus [Unknown]
  - Cyst [Unknown]
  - Fall [Unknown]
  - Osteoarthritis [Not Recovered/Not Resolved]
  - Sensitivity to weather change [Unknown]
  - Vertigo [Unknown]
  - Dental cleaning [Unknown]
  - Type 2 diabetes mellitus [Unknown]
  - Peripheral swelling [Unknown]
  - Contusion [Unknown]
  - Rheumatoid arthritis [Recovered/Resolved]
  - Incision site rash [Unknown]
  - Foot deformity [Unknown]
  - Joint lock [Unknown]
  - Dermatitis contact [Unknown]
  - Pain [Unknown]
  - Cataract [Unknown]
  - Incision site swelling [Unknown]
  - Dizziness [Unknown]
  - Head injury [Unknown]
  - Drug effect variable [Unknown]

NARRATIVE: CASE EVENT DATE: 201801
